FAERS Safety Report 7024540-4 (Version None)
Quarter: 2010Q4

REPORT INFORMATION
  Report Type: 
  Country: None (occurrence: None)
  Receive Date: 20101001
  Receipt Date: 20100922
  Transmission Date: 20110411
  Serious: Yes (Other)
  Sender: FDA-Public Use
  Company Number: B0677105A

PATIENT
  Sex: Female

DRUGS (1)
  1. NEOTIGASON [Suspect]
     Indication: PSORIASIS
     Route: 065

REACTIONS (8)
  - BACK PAIN [None]
  - CONDITION AGGRAVATED [None]
  - DEPRESSED LEVEL OF CONSCIOUSNESS [None]
  - DRUG INEFFECTIVE [None]
  - EMOTIONAL DISORDER [None]
  - ONYCHOCLASIS [None]
  - PAIN [None]
  - SKIN EXFOLIATION [None]
